FAERS Safety Report 7809299-2 (Version None)
Quarter: 2011Q4

REPORT INFORMATION
  Report Type: 
  Country: None (occurrence: None)
  Receive Date: 20111006
  Receipt Date: 20110929
  Transmission Date: 20120403
  Serious: Yes (Other)
  Sender: FDA-Public Use
  Company Number: 2011SP042868

PATIENT
  Sex: Female

DRUGS (1)
  1. INTERFERON [Suspect]
     Indication: HEPATITIS
     Dosage: TIW;

REACTIONS (5)
  - DISEASE RECURRENCE [None]
  - INTERVERTEBRAL DISC DEGENERATION [None]
  - HEPATIC CIRRHOSIS [None]
  - ARTHRITIS [None]
  - HEPATITIS C [None]
